FAERS Safety Report 20520802 (Version 2)
Quarter: 2022Q1

REPORT INFORMATION
  Report Type: Report from Study
  Country: DE (occurrence: DE)
  Receive Date: 20220225
  Receipt Date: 20220315
  Transmission Date: 20220423
  Serious: Yes (Other)
  Sender: FDA-Public Use
  Company Number: DE-ABBVIE-22K-062-4260625-00

PATIENT
  Age: 83 Year
  Sex: Female

DRUGS (16)
  1. GABAPENTIN [Suspect]
     Active Substance: GABAPENTIN
     Dosage: UNK
     Route: 065
  2. CARBIDOPA\LEVODOPA [Suspect]
     Active Substance: CARBIDOPA\LEVODOPA
     Indication: Parkinson^s disease
     Dosage: MD 10.0 ML, CRD 4.4 ML/H, ED 2.0ML
     Dates: start: 20191204
  3. TRAZODONE [Suspect]
     Active Substance: TRAZODONE HYDROCHLORIDE
     Dosage: 100 MG
     Route: 048
  4. MOVICOL [Concomitant]
     Active Substance: POLYETHYLENE GLYCOL 3350\POTASSIUM CHLORIDE\SODIUM BICARBONATE\SODIUM CHLORIDE
  5. BENSERAZIDE HYDROCHLORIDE\LEVODOPA [Concomitant]
     Active Substance: BENSERAZIDE HYDROCHLORIDE\LEVODOPA
  6. VITAMIN B12 [Concomitant]
     Active Substance: CYANOCOBALAMIN
     Route: 058
  7. PREGABALIN [Concomitant]
     Active Substance: PREGABALIN
  8. XADAGO [Concomitant]
     Active Substance: SAFINAMIDE MESYLATE
  9. BENSERAZIDE HYDROCHLORIDE\LEVODOPA [Concomitant]
     Active Substance: BENSERAZIDE HYDROCHLORIDE\LEVODOPA
  10. BISOPROLOL [Concomitant]
     Active Substance: BISOPROLOL
  11. LEVODOPA [Concomitant]
     Active Substance: LEVODOPA
     Dosage: 1 DF, AS NEEDED
     Route: 048
  12. XARELTO [Concomitant]
     Active Substance: RIVAROXABAN
  13. MAGNESIUM VERLA [MAGNESIUM ASPARTATE;MAGNESIUM CITRATE;MAGNESIUM GLUTA [Concomitant]
  14. FOLIC ACID [Concomitant]
     Active Substance: FOLIC ACID
  15. ZOPICLONE [Concomitant]
     Active Substance: ZOPICLONE
  16. VITAMIN B12 [Concomitant]
     Active Substance: CYANOCOBALAMIN
     Route: 058

REACTIONS (10)
  - Hallucination [Recovering/Resolving]
  - Immobile [Not Recovered/Not Resolved]
  - Muscle spasms [Not Recovered/Not Resolved]
  - Pain [Recovering/Resolving]
  - Incorrect dose administered [Not Recovered/Not Resolved]
  - Device alarm issue [Unknown]
  - General physical condition abnormal [Not Recovered/Not Resolved]
  - Restless legs syndrome [Not Recovered/Not Resolved]
  - Eye disorder [Not Recovered/Not Resolved]
  - Therapeutic product effect incomplete [Unknown]
